FAERS Safety Report 19092387 (Version 2)
Quarter: 2021Q2

REPORT INFORMATION
  Report Type: Report from Study
  Country: CA (occurrence: CA)
  Receive Date: 20210405
  Receipt Date: 20210628
  Transmission Date: 20210717
  Serious: Yes (Hospitalization, Other)
  Sender: FDA-Public Use
  Company Number: CA-009507513-2010CAN010170

PATIENT
  Age: 62 Year
  Sex: Male

DRUGS (31)
  1. JARDIANCE [Concomitant]
     Active Substance: EMPAGLIFLOZIN
     Dosage: UNK
  2. PERINDOPRIL [Concomitant]
     Active Substance: PERINDOPRIL
     Dosage: UNK
  3. INLYTA [Suspect]
     Active Substance: AXITINIB
     Dosage: 5 MG, 2X/DAY; ORAL
     Route: 048
  4. INLYTA [Suspect]
     Active Substance: AXITINIB
     Dosage: 5 MG, 2X/DAY; ORAL
     Route: 048
     Dates: start: 20210217
  5. INLYTA [Suspect]
     Active Substance: AXITINIB
     Dosage: 5 MILLIGRAM, BID (2 EVERY 1 DAYS) (THERAPY DURARION ?240)
     Route: 048
  6. COMBIVENT [Concomitant]
     Active Substance: ALBUTEROL SULFATE\IPRATROPIUM BROMIDE
     Dosage: DOSAGE FORM: SOLUTION INHALATION
  7. COMBIVENT [Concomitant]
     Active Substance: ALBUTEROL SULFATE\IPRATROPIUM BROMIDE
     Dosage: DOSAGE FORM: SOLUTION INHALATION
  8. EYLEA [Concomitant]
     Active Substance: AFLIBERCEPT
     Dosage: DOSAGE FORM: INJECTION
  9. LYRICA [Concomitant]
     Active Substance: PREGABALIN
     Dosage: DOSAGE FORM: CAPSULES
  10. PEMBROLIZUMAB. [Suspect]
     Active Substance: PEMBROLIZUMAB
     Indication: METASTATIC RENAL CELL CARCINOMA
     Dosage: 200 MILLIGRAM, Q3W
     Dates: end: 202010
  11. INLYTA [Suspect]
     Active Substance: AXITINIB
     Indication: METASTATIC RENAL CELL CARCINOMA
     Dosage: 5 MG, 1X/DAY; UNKNOWN
     Route: 065
     Dates: start: 2020
  12. PEMBROLIZUMAB. [Suspect]
     Active Substance: PEMBROLIZUMAB
     Dosage: DOSAGE FORM: NOT SPECIFIED
     Route: 065
  13. INLYTA [Suspect]
     Active Substance: AXITINIB
     Dosage: 5MG, 2X/DAY X 30 DAYS
     Route: 048
     Dates: start: 20200828
  14. INLYTA [Suspect]
     Active Substance: AXITINIB
     Dosage: 5 MILLIGRAM, 2 EVERY 1 DAY, DOSAGE FORM: TABLET
     Route: 048
  15. ACETYLSALICYLIC ACID [Concomitant]
     Active Substance: ASPIRIN
     Dosage: DOSAGE FORM: NOT SPECIFIED
  16. ACETYLSALICYLIC ACID [Concomitant]
     Active Substance: ASPIRIN
     Dosage: DOSAGE FORM: NOT SPECIFIED
  17. BREO ELLIPTA [Concomitant]
     Active Substance: FLUTICASONE FUROATE\VILANTEROL TRIFENATATE
     Dosage: DOSAGE FORM: INHALATION
  18. BREO ELLIPTA [Concomitant]
     Active Substance: FLUTICASONE FUROATE\VILANTEROL TRIFENATATE
     Dosage: DOSAGE FORM: INHALATION
  19. EYLEA [Concomitant]
     Active Substance: AFLIBERCEPT
     Dosage: DOSAGE FORM: INJECTION
  20. FLOVENT [Concomitant]
     Active Substance: FLUTICASONE PROPIONATE
     Dosage: DOSAGE FORM: NOT SPECIFIED
  21. LYRICA [Concomitant]
     Active Substance: PREGABALIN
     Dosage: DOSAGE FORM: CAPSULES
  22. NOVORAPID [Concomitant]
     Active Substance: INSULIN ASPART
     Dosage: DOSAGE FORM: SOLUTION SUBCUTANEOUS
  23. PRAVASTATIN. [Concomitant]
     Active Substance: PRAVASTATIN
  24. TOUJEO [Concomitant]
     Active Substance: INSULIN GLARGINE
     Dosage: DOSAGE FORM: NOT SPECIFIED.
  25. GLUMETZA [Concomitant]
     Active Substance: METFORMIN HYDROCHLORIDE
     Dosage: DOSAGE FORM: TABLET (EXTENDED?RELEASE)
  26. JARDIANCE [Concomitant]
     Active Substance: EMPAGLIFLOZIN
     Dosage: UNK
  27. FLOVENT [Concomitant]
     Active Substance: FLUTICASONE PROPIONATE
     Dosage: DOSAGE FORM: NOT SPECIFIED
  28. GLUMETZA [Concomitant]
     Active Substance: METFORMIN HYDROCHLORIDE
     Dosage: DOSAGE FORM: TABLET (EXTENDED?RELEASE)
  29. NOVORAPID [Concomitant]
     Active Substance: INSULIN ASPART
     Dosage: DOSAGE FORM: SOLUTION SUBCUTANEOUS
  30. PERINDOPRIL [Concomitant]
     Active Substance: PERINDOPRIL
     Dosage: UNK
  31. TOUJEO [Concomitant]
     Active Substance: INSULIN GLARGINE
     Dosage: DOSAGE FORM: NOT SPECIFIED.

REACTIONS (8)
  - Dysphonia [Unknown]
  - Blood glucose increased [Unknown]
  - Dyspnoea [Unknown]
  - Aphonia [Unknown]
  - Anaphylactic reaction [Unknown]
  - Angioedema [Unknown]
  - Off label use [Unknown]
  - Product use in unapproved indication [Unknown]

NARRATIVE: CASE EVENT DATE: 202010
